FAERS Safety Report 18578929 (Version 1)
Quarter: 2020Q4

REPORT INFORMATION
  Report Type: Spontaneous
  Country: US (occurrence: US)
  Receive Date: 20201203
  Receipt Date: 20201203
  Transmission Date: 20210114
  Serious: Yes (Death, Hospitalization)
  Sender: FDA-Public Use
  Company Number: None

PATIENT
  Age: 73 Year
  Sex: Male

DRUGS (12)
  1. VYNDAMAX [Suspect]
     Active Substance: TAFAMIDIS
     Indication: PRODUCT USED FOR UNKNOWN INDICATION
     Route: 048
     Dates: start: 20200925
  2. GABAPENTIN. [Concomitant]
     Active Substance: GABAPENTIN
  3. BUMETANIDE. [Concomitant]
     Active Substance: BUMETANIDE
  4. ELIQUIS [Concomitant]
     Active Substance: APIXABAN
  5. LATANOPROST. [Concomitant]
     Active Substance: LATANOPROST
  6. TOUJEO SOLO [Concomitant]
  7. MAGNESIUM-OX [Concomitant]
  8. MIDODRINE [Concomitant]
     Active Substance: MIDODRINE
  9. PRODIGY [Concomitant]
  10. ATORVASTATIN [Concomitant]
     Active Substance: ATORVASTATIN
  11. METOLAZONE. [Concomitant]
     Active Substance: METOLAZONE
  12. DIGOXIN. [Concomitant]
     Active Substance: DIGOXIN

REACTIONS (2)
  - Cardiac failure [None]
  - COVID-19 [None]
